FAERS Safety Report 21185081 (Version 1)
Quarter: 2022Q3

REPORT INFORMATION
  Report Type: Spontaneous
  Country: US (occurrence: None)
  Receive Date: 20220807
  Receipt Date: 20220807
  Transmission Date: 20221027
  Serious: No
  Sender: FDA-Public Use
  Company Number: None

PATIENT
  Age: 19 Year
  Weight: 96.75 kg

DRUGS (3)
  1. MUPIROCIN [Suspect]
     Active Substance: MUPIROCIN
     Dosage: FREQUENCY : AS NEEDED;?
     Route: 061
  2. DOXYCYCLINE HYCLATE [Concomitant]
     Active Substance: DOXYCYCLINE HYCLATE
  3. VITAMINS [Concomitant]
     Active Substance: VITAMINS

REACTIONS (1)
  - Application site pruritus [None]

NARRATIVE: CASE EVENT DATE: 20220228
